FAERS Safety Report 20699276 (Version 1)
Quarter: 2022Q2

REPORT INFORMATION
  Report Type: Spontaneous
  Country: US (occurrence: US)
  Receive Date: 20220412
  Receipt Date: 20220412
  Transmission Date: 20220721
  Serious: Yes (Other)
  Sender: FDA-Public Use
  Company Number: US-ALLERGAN-2211390US

PATIENT
  Sex: Female
  Weight: 61.678 kg

DRUGS (2)
  1. REFRESH PLUS [Suspect]
     Active Substance: CARBOXYMETHYLCELLULOSE SODIUM
     Indication: Dry eye
     Dosage: ACTUAL: 2 GTT, 1/2 TUBE IN ONE EYE AND 1/2 TUBE IN THE OTHER
     Route: 047
  2. VITAMINS NOS [Concomitant]
     Active Substance: VITAMINS
     Dosage: UNK

REACTIONS (3)
  - Cataract [Recovered/Resolved]
  - Corneal oedema [Unknown]
  - Manufacturing product shipping issue [Unknown]
